FAERS Safety Report 17187045 (Version 1)
Quarter: 2019Q4

REPORT INFORMATION
  Report Type: Spontaneous
  Country: FR (occurrence: FR)
  Receive Date: 20191220
  Receipt Date: 20191220
  Transmission Date: 20200122
  Serious: Yes (Other)
  Sender: FDA-Public Use
  Company Number: FR-JNJFOC-20191221974

PATIENT
  Age: 55 Year
  Sex: Female
  Weight: 66 kg

DRUGS (5)
  1. CORTANCYL [Concomitant]
     Active Substance: PREDNISONE
     Dates: start: 20181101
  2. STELARA [Suspect]
     Active Substance: USTEKINUMAB
     Route: 058
     Dates: start: 20181020
  3. QUESTRAN [Concomitant]
     Active Substance: CHOLESTYRAMINE
     Dates: start: 20190120
  4. STELARA [Suspect]
     Active Substance: USTEKINUMAB
     Indication: ANKYLOSING SPONDYLITIS
     Route: 058
     Dates: start: 20180818, end: 20181020
  5. LEVOFLOXACINE BIOGARAN [Concomitant]
     Dates: start: 20190418, end: 20190427

REACTIONS (3)
  - Mucosal inflammation [Recovered/Resolved]
  - Lung disorder [Recovered/Resolved]
  - Aphthous ulcer [Recovered/Resolved]

NARRATIVE: CASE EVENT DATE: 20190812
